FAERS Safety Report 6237524-0 (Version None)
Quarter: 2009Q2

REPORT INFORMATION
  Report Type: 
  Country: None (occurrence: None)
  Receive Date: 20090619
  Receipt Date: 20090611
  Transmission Date: 20091009
  Serious: Yes (Other)
  Sender: FDA-Public Use
  Company Number: US-GENENTECH-284981

PATIENT
  Sex: Female
  Weight: 58.6 kg

DRUGS (10)
  1. RITUXAN [Suspect]
     Indication: NON-HODGKIN'S LYMPHOMA
     Dosage: 375 MG/M2
     Route: 042
     Dates: start: 20080101
  2. RITUXAN [Suspect]
     Indication: RHEUMATOID ARTHRITIS
     Dosage: Q8-9W
  3. SYNTHROID [Concomitant]
     Indication: DRUG USE FOR UNKNOWN INDICATION
  4. LASIX [Concomitant]
     Indication: DRUG USE FOR UNKNOWN INDICATION
  5. PLAQUENIL [Concomitant]
     Indication: DRUG USE FOR UNKNOWN INDICATION
  6. NEXIUM [Concomitant]
     Indication: DRUG USE FOR UNKNOWN INDICATION
  7. POTASSIUM CHLORIDE [Concomitant]
     Indication: DRUG USE FOR UNKNOWN INDICATION
  8. CALCIUM [Concomitant]
     Indication: DRUG USE FOR UNKNOWN INDICATION
  9. VITAMIN D [Concomitant]
     Indication: DRUG USE FOR UNKNOWN INDICATION
  10. BENADRYL [Concomitant]
     Indication: PREMEDICATION

REACTIONS (1)
  - BREAST CANCER IN SITU [None]
